FAERS Safety Report 10561528 (Version 1)
Quarter: 2014Q4

REPORT INFORMATION
  Report Type: Spontaneous
  Country: US (occurrence: US)
  Receive Date: 20141103
  Receipt Date: 20141103
  Transmission Date: 20150529
  Serious: Yes (Hospitalization)
  Sender: FDA-Public Use
  Company Number: US-UNITED THERAPEUTICS-UNT-2014-009967

PATIENT
  Age: 64 Year
  Sex: Female
  Weight: 48.57 kg

DRUGS (1)
  1. TYVASO [Suspect]
     Active Substance: TREPROSTINIL
     Indication: PULMONARY ARTERIAL HYPERTENSION
     Dosage: 18-54 ?G, QID
     Dates: start: 20140213

REACTIONS (3)
  - Malaise [Unknown]
  - Therapy cessation [Unknown]
  - Weight increased [Unknown]

NARRATIVE: CASE EVENT DATE: 20141021
